FAERS Safety Report 7818896-X (Version None)
Quarter: 2011Q4

REPORT INFORMATION
  Report Type: 
  Country: None (occurrence: None)
  Receive Date: 20111017
  Receipt Date: 20111017
  Transmission Date: 20120403
  Serious: Yes (Hospitalization)
  Sender: FDA-Public Use
  Company Number: None

PATIENT
  Sex: Female
  Weight: 80.1 kg

DRUGS (12)
  1. MULTI-VITAMIN [Concomitant]
  2. LORAZEPAM [Concomitant]
  3. PRAVASTATIN [Concomitant]
  4. METOPROLOLXII [Concomitant]
  5. PAROXETINE HCL [Concomitant]
  6. EZETIMIBE [Concomitant]
  7. FUROSEMIDE [Concomitant]
  8. TAXOL [Suspect]
     Dosage: 337.75 MG
     Dates: end: 20110907
  9. MORPHINE [Concomitant]
  10. OMEPRAZOLE [Concomitant]
  11. POTASSIUM CHLORIDE [Concomitant]
  12. CISPLATIN [Suspect]
     Dosage: 96.5 MG
     Dates: end: 20110907

REACTIONS (5)
  - FALL [None]
  - PLEURAL EFFUSION [None]
  - ANAEMIA [None]
  - PNEUMOTHORAX [None]
  - DYSPNOEA [None]
